FAERS Safety Report 7501660-9 (Version None)
Quarter: 2011Q2

REPORT INFORMATION
  Report Type: 
  Country: None (occurrence: None)
  Receive Date: 20110524
  Receipt Date: 20110519
  Transmission Date: 20111010
  Serious: Yes (Other)
  Sender: FDA-Public Use
  Company Number: CA-ELI_LILLY_AND_COMPANY-CA201105005585

PATIENT
  Sex: Male
  Weight: 96.8 kg

DRUGS (13)
  1. ZYPREXA [Suspect]
     Dosage: 7.5 MG, EACH EVENING
  2. CLONAZEPAM [Concomitant]
  3. TOPIRAMATE [Concomitant]
  4. SERTRALINE HYDROCHLORIDE [Concomitant]
  5. ZYPREXA ZYDIS [Suspect]
     Indication: BIPOLAR DISORDER
     Dosage: 20 MG, EACH EVENING
  6. ZYPREXA [Suspect]
     Indication: BIPOLAR DISORDER
     Dosage: 20 MG, EACH EVENING
  7. TRAZODONE HCL [Concomitant]
  8. RAMIPRIL [Concomitant]
  9. VENLAFAXINE [Concomitant]
  10. ANAFRANIL [Concomitant]
  11. AMITRIPTYLINE HCL [Concomitant]
  12. ESCITALOPRAM [Concomitant]
  13. FLUVOXAMINE MALEATE [Concomitant]

REACTIONS (7)
  - DIABETES MELLITUS [None]
  - LIPIDS INCREASED [None]
  - OVERDOSE [None]
  - BLOOD PRESSURE INCREASED [None]
  - WEIGHT INCREASED [None]
  - RENAL FAILURE [None]
  - HEPATIC STEATOSIS [None]
